FAERS Safety Report 8959018 (Version 1)
Quarter: 2012Q4

REPORT INFORMATION
  Report Type: 
  Country: FR (occurrence: FR)
  Receive Date: 20121212
  Receipt Date: 20121212
  Transmission Date: 20130627
  Serious: Yes (Hospitalization)
  Sender: FDA-Public Use
  Company Number: FR-ASTRAZENECA-2012SE91266

PATIENT
  Age: 27150 Day
  Sex: Female

DRUGS (5)
  1. ARIMIDEX [Suspect]
     Indication: BREAST CANCER
     Route: 048
     Dates: start: 201206
  2. LIPANTHYL [Concomitant]
     Route: 048
  3. ESIDREX [Concomitant]
     Route: 048
  4. OLMETEC [Concomitant]
     Route: 048
  5. SOPROL [Concomitant]
     Route: 048

REACTIONS (6)
  - Pulmonary embolism [Recovered/Resolved]
  - Peripheral ischaemia [Recovered/Resolved]
  - Fall [Recovered/Resolved]
  - Dyspnoea exertional [Recovered/Resolved]
  - Cough [Recovered/Resolved]
  - Pyrexia [Recovered/Resolved]
